FAERS Safety Report 11303116 (Version 1)
Quarter: 2015Q3

REPORT INFORMATION
  Report Type: Report from Study
  Country: KR (occurrence: KR)
  Receive Date: 20150723
  Receipt Date: 20150723
  Transmission Date: 20151125
  Serious: Yes (Other)
  Sender: FDA-Public Use
  Company Number: KR-REGENERON PHARMACEUTICALS, INC.-2015-11519

PATIENT

DRUGS (4)
  1. EYLEA [Suspect]
     Active Substance: AFLIBERCEPT
     Dosage: 2 MG, ONCE, RIGHT EYE (4TH INJECTION)
     Route: 031
     Dates: start: 20150414
  2. EYLEA [Suspect]
     Active Substance: AFLIBERCEPT
     Dosage: 2 MG, Q2MON (5TH INJECTION)
     Route: 031
     Dates: start: 201506
  3. EYLEA [Suspect]
     Active Substance: AFLIBERCEPT
     Dosage: RIGHT EYE
     Dates: start: 20150512
  4. EYLEA [Suspect]
     Active Substance: AFLIBERCEPT
     Indication: AGE-RELATED MACULAR DEGENERATION
     Dosage: 2 MG, ONCE, LEFT EYE (1ST INJECTION)
     Route: 031
     Dates: start: 20140523, end: 20140523

REACTIONS (11)
  - Dry eye [Recovered/Resolved]
  - Dry eye [Unknown]
  - Vision blurred [Not Recovered/Not Resolved]
  - Retinal haemorrhage [Unknown]
  - Asthenopia [Unknown]
  - Eye disorder [Recovering/Resolving]
  - Ophthalmological examination abnormal [Unknown]
  - Macular oedema [Unknown]
  - Visual impairment [Unknown]
  - Visual impairment [Unknown]
  - Diplopia [Unknown]

NARRATIVE: CASE EVENT DATE: 2014
